FAERS Safety Report 8840754 (Version 1)
Quarter: 2012Q4

REPORT INFORMATION
  Report Type: 
  Country: US (occurrence: US)
  Receive Date: 20121015
  Receipt Date: 20121015
  Transmission Date: 20130627
  Serious: Yes (Other)
  Sender: FDA-Public Use
  Company Number: US-ELI_LILLY_AND_COMPANY-US201210002744

PATIENT
  Age: 84 Year
  Sex: Female

DRUGS (1)
  1. FORTEO [Suspect]
     Indication: OSTEOPOROSIS
     Dosage: 20 ug, qd

REACTIONS (9)
  - Cardiac failure congestive [Unknown]
  - Spinal fracture [Unknown]
  - Renal impairment [Unknown]
  - Vascular calcification [Unknown]
  - Hyperkalaemia [Unknown]
  - Spinal deformity [Unknown]
  - Glucose tolerance impaired [Unknown]
  - Pulmonary calcification [Unknown]
  - Incorrect drug administration duration [Unknown]
